FAERS Safety Report 22327397 (Version 1)
Quarter: 2023Q2

REPORT INFORMATION
  Report Type: Spontaneous
  Country: US (occurrence: US)
  Receive Date: 20230516
  Receipt Date: 20230516
  Transmission Date: 20230721
  Serious: No
  Sender: FDA-Public Use
  Company Number: US-RADIUS HEALTH INC.-2022US003315

PATIENT
  Age: 65 Year
  Sex: Female

DRUGS (1)
  1. TYMLOS [Suspect]
     Active Substance: ABALOPARATIDE
     Indication: Osteoarthritis
     Dosage: 80 MICROGRAM, QD
     Route: 058
     Dates: start: 202206

REACTIONS (9)
  - Confusional state [Recovering/Resolving]
  - Somnolence [Recovering/Resolving]
  - Dyskinesia [Recovering/Resolving]
  - Muscle spasticity [Recovering/Resolving]
  - Dizziness [Recovering/Resolving]
  - Rash [Unknown]
  - Drug hypersensitivity [Unknown]
  - Needle issue [Unknown]
  - Product use in unapproved indication [Not Recovered/Not Resolved]

NARRATIVE: CASE EVENT DATE: 20220601
